FAERS Safety Report 10235601 (Version 1)
Quarter: 2014Q2

REPORT INFORMATION
  Report Type: Spontaneous
  Country: US (occurrence: None)
  Receive Date: 20140612
  Receipt Date: 20140612
  Transmission Date: 20141212
  Serious: Yes (Other)
  Sender: FDA-Public Use
  Company Number: None

PATIENT
  Age: 51 Year
  Sex: Male

DRUGS (1)
  1. HYDROGEN PEROXIDE [Suspect]
     Indication: ULCER
     Dates: start: 20140607, end: 20140608

REACTIONS (2)
  - Swelling [None]
  - Chemical injury [None]
